FAERS Safety Report 9506479 (Version 2)
Quarter: 2013Q3

REPORT INFORMATION
  Report Type: Spontaneous
  Country: DE (occurrence: DE)
  Receive Date: 20130906
  Receipt Date: 20130920
  Transmission Date: 20140515
  Serious: Yes (Hospitalization, Other)
  Sender: FDA-Public Use
  Company Number: PHHY2013DE098107

PATIENT
  Age: 60 Year
  Sex: Male

DRUGS (6)
  1. TEGRETAL RETARD [Suspect]
     Indication: CONVULSION
     Dosage: 400 MG, UNK
  2. TEGRETAL RETARD [Suspect]
     Dosage: 600 MG, UNK
     Dates: start: 200607
  3. CANDESARTAN [Concomitant]
     Indication: HYPERTENSION
     Dosage: 16 MG, (8 MG DAILY)
     Route: 048
     Dates: start: 20070604
  4. SIMVASTATIN [Concomitant]
     Indication: HYPERLIPIDAEMIA
     Dosage: 20 MG, DAILY
     Route: 048
     Dates: start: 20060316
  5. TORASEMIDE [Concomitant]
     Indication: HYPERTENSION
     Dosage: 2.5 MG, DAILY
     Route: 048
     Dates: start: 20060704
  6. MTX//METHOTREXATE [Concomitant]
     Indication: RHEUMATOID ARTHRITIS
     Dosage: 20 MG, (20MG PER WEEK)
     Route: 048
     Dates: start: 20130814

REACTIONS (2)
  - Pulmonary fibrosis [Recovering/Resolving]
  - Syncope [Unknown]
